FAERS Safety Report 5473103-0 (Version None)
Quarter: 2007Q3

REPORT INFORMATION
  Report Type: 
  Country: None (occurrence: None)
  Receive Date: 20070926
  Receipt Date: 20070913
  Transmission Date: 20080115
  Serious: Yes (Other)
  Sender: FDA-Public Use
  Company Number: B0488126A

PATIENT
  Sex: Female

DRUGS (4)
  1. SULFAMETHOXAZOLE AND TRIMETHOPRIM [Suspect]
     Indication: ACTINOMYCOSIS
     Dosage: 2 TABLET / TWICE PER DAY / ORAL
     Route: 048
  2. GENTAMICIN SULFATE [Suspect]
     Indication: ACTINOMYCOSIS
     Dosage: 80 MG / TWICE PER DAY / INTRAVENOUS
     Route: 042
  3. AMOXICILLIN TRIHYDRATE [Suspect]
     Indication: ACTINOMYCOSIS
     Dosage: 500 MG / PER TIMES PER DAY / ORAL
     Route: 048
  4. DOXYCYCLINE [Suspect]
     Indication: ACTINOMYCOSIS
     Dosage: 100 MG / TWICE PER DAY / ORAL
     Route: 048

REACTIONS (4)
  - CAESAREAN SECTION [None]
  - DRUG EXPOSURE DURING PREGNANCY [None]
  - PANCYTOPENIA [None]
  - PREGNANCY TEST POSITIVE [None]
